FAERS Safety Report 4969263-8 (Version None)
Quarter: 2006Q2

REPORT INFORMATION
  Report Type: 
  Country: None (occurrence: None)
  Receive Date: 20060405
  Receipt Date: 20060322
  Transmission Date: 20061013
  Serious: Yes (Hospitalization)
  Sender: FDA-Public Use
  Company Number: 2006041666

PATIENT
  Age: 77 Year
  Sex: Female
  Weight: 58.9676 kg

DRUGS (7)
  1. CELEBREX [Suspect]
     Indication: OSTEOARTHRITIS
     Dosage: 200 MG (200 MG, 1 IN 1 D)
     Dates: start: 20041029
  2. SYNTHROID [Concomitant]
  3. LIPITOR (ATORVASTATIN) [Concomitant]
  4. ACTONEL [Concomitant]
  5. VITAMINS [Concomitant]
  6. CALCIUM GLUCONATE [Concomitant]
  7. VITAMIN D [Concomitant]

REACTIONS (4)
  - BODY HEIGHT DECREASED [None]
  - CHROMATURIA [None]
  - FALL [None]
  - SPINAL COLUMN STENOSIS [None]
